FAERS Safety Report 7562656-4 (Version None)
Quarter: 2011Q2

REPORT INFORMATION
  Report Type: 
  Country: None (occurrence: None)
  Receive Date: 20110525
  Receipt Date: 20110428
  Transmission Date: 20111010
  Serious: No
  Sender: FDA-Public Use
  Company Number: 326373

PATIENT
  Age: 79 Year
  Sex: Male

DRUGS (2)
  1. VICTOZA [Suspect]
     Indication: TYPE 2 DIABETES MELLITUS
     Dosage: 1. 8 MG, QD, SUBCUTANEOUS
     Route: 058
     Dates: start: 20110113
  2. VICTOZA [Suspect]
     Dosage: 1.8 MG, QD, SUBCUTANEOUS
     Route: 058

REACTIONS (2)
  - NAUSEA [None]
  - WEIGHT DECREASED [None]
